FAERS Safety Report 4915964-7 (Version None)
Quarter: 2006Q1

REPORT INFORMATION
  Report Type: 
  Country: None (occurrence: None)
  Receive Date: 20060214
  Receipt Date: 20060125
  Transmission Date: 20060701
  Serious: Yes (Other)
  Sender: FDA-Public Use
  Company Number: US200512002003

PATIENT
  Sex: Male
  Weight: 92.1 kg

DRUGS (6)
  1. ZYPREXA [Suspect]
     Dosage: SEE IMAGE
     Route: 048
     Dates: start: 20030206, end: 20030314
  2. ZYPREXA [Suspect]
     Dosage: SEE IMAGE
     Route: 048
     Dates: start: 20030314, end: 20030407
  3. ZYPREXA [Suspect]
     Dosage: SEE IMAGE
     Route: 048
     Dates: start: 20030407, end: 20050101
  4. HALDOL [Concomitant]
  5. COGENTIN(BENZTROPINE MESILATE) [Concomitant]
  6. ... [Concomitant]

REACTIONS (16)
  - ARTHRALGIA [None]
  - ASTHENIA [None]
  - BACK PAIN [None]
  - BLOOD GLUCOSE INCREASED [None]
  - DIARRHOEA [None]
  - EYE PAIN [None]
  - HYPERCHOLESTEROLAEMIA [None]
  - LOSS OF CONSCIOUSNESS [None]
  - MYALGIA [None]
  - PAIN [None]
  - PALPITATIONS [None]
  - PANCREATITIS [None]
  - PSYCHIATRIC SYMPTOM [None]
  - STRESS [None]
  - TREMOR [None]
  - WEIGHT INCREASED [None]
